FAERS Safety Report 7934843-4 (Version None)
Quarter: 2011Q4

REPORT INFORMATION
  Report Type: 
  Country: None (occurrence: None)
  Receive Date: 20111122
  Receipt Date: 20111109
  Transmission Date: 20120403
  Serious: No
  Sender: FDA-Public Use
  Company Number: US-B.I. PHARMACEUTICALS,INC./RIDGEFIELD-2011-BP-24867BP

PATIENT
  Sex: Male

DRUGS (9)
  1. PRADAXA [Suspect]
     Indication: ATRIAL FIBRILLATION
     Route: 048
  2. EXFORGE [Concomitant]
  3. CALCIUM + VITAMIN D [Concomitant]
  4. CENTRUM [Concomitant]
  5. WARFARIN SODIUM [Concomitant]
  6. CASODEX [Concomitant]
  7. INSULIN [Concomitant]
  8. ZOCOR [Concomitant]
  9. ASPIRIN [Concomitant]

REACTIONS (5)
  - INSOMNIA [None]
  - DECREASED APPETITE [None]
  - DIARRHOEA [None]
  - ABDOMINAL DISCOMFORT [None]
  - ABDOMINAL PAIN UPPER [None]
